FAERS Safety Report 9641712 (Version 1)
Quarter: 2013Q4

REPORT INFORMATION
  Report Type: Spontaneous
  Country: GR (occurrence: GR)
  Receive Date: 20131023
  Receipt Date: 20131023
  Transmission Date: 20140711
  Serious: Yes (Hospitalization)
  Sender: FDA-Public Use
  Company Number: GR-B.I. PHARMACEUTICALS,INC./RIDGEFIELD-2013-BI-33465GB

PATIENT
  Age: 84 Year
  Sex: Male

DRUGS (8)
  1. PRADAXA [Suspect]
     Indication: ATRIAL FIBRILLATION
     Dosage: 220 MG
     Route: 048
     Dates: start: 201201, end: 201309
  2. APROVEL / IRBESARTAN [Concomitant]
     Indication: HYPERTENSION
     Dosage: 300 MG
  3. UNSPECIFIED LECARNIDIPINE PRODUCT [Concomitant]
     Indication: HYPERTENSION
     Dosage: 20 MG
  4. UNSPECIFIED ATORVASTATIN PRODUCT [Concomitant]
     Indication: HYPERLIPIDAEMIA
     Dosage: 20 MG
  5. UNSPECIFIED METOPROLOL PRODUCT [Concomitant]
     Indication: HYPERTENSION
     Dosage: 75 MG
  6. UNSPECIFIED TRANSDERMAL NITRITE PRODUCT [Concomitant]
     Indication: ANGINA PECTORIS
     Dosage: 10 MG
  7. UNSPECIFIED OMEGA E PRODUCT [Concomitant]
  8. UNSPECIFIED MAGNESIUM PRODUCT [Concomitant]

REACTIONS (3)
  - Respiratory tract infection [Recovered/Resolved]
  - Haemoptysis [Recovered/Resolved]
  - Pulmonary alveolar haemorrhage [Recovered/Resolved]
